FAERS Safety Report 8407919-5 (Version None)
Quarter: 2012Q2

REPORT INFORMATION
  Report Type: 
  Country: None (occurrence: None)
  Receive Date: 20120604
  Receipt Date: 20120530
  Transmission Date: 20120825
  Serious: Yes (Other)
  Sender: FDA-Public Use
  Company Number: US-ROCHE-1027668

PATIENT
  Sex: Female
  Weight: 56.75 kg

DRUGS (2)
  1. ACCUTANE [Suspect]
     Indication: HIDRADENITIS
     Route: 065
     Dates: start: 19990601, end: 19991201
  2. ACCUTANE [Suspect]
     Dates: start: 20000201, end: 20000801

REACTIONS (6)
  - INFLAMMATORY BOWEL DISEASE [None]
  - SUICIDAL IDEATION [None]
  - DEPRESSION [None]
  - IRRITABLE BOWEL SYNDROME [None]
  - MENTAL DISORDER [None]
  - CROHN'S DISEASE [None]
